FAERS Safety Report 8513434-0 (Version None)
Quarter: 2012Q3

REPORT INFORMATION
  Report Type: 
  Country: None (occurrence: None)
  Receive Date: 20120717
  Receipt Date: 20120705
  Transmission Date: 20120928
  Serious: No
  Sender: FDA-Public Use
  Company Number: US-BIOGENIDEC-2012BI007508

PATIENT
  Sex: Female

DRUGS (2)
  1. TYSABRI [Suspect]
     Route: 042
  2. TYSABRI [Suspect]
     Indication: MULTIPLE SCLEROSIS
     Route: 042
     Dates: start: 20110927, end: 20120126

REACTIONS (3)
  - LOCALISED INTRAABDOMINAL FLUID COLLECTION [None]
  - LOWER RESPIRATORY TRACT INFECTION [None]
  - ABDOMINAL MASS [None]
